FAERS Safety Report 8352468-6 (Version None)
Quarter: 2012Q2

REPORT INFORMATION
  Report Type: 
  Country: None (occurrence: None)
  Receive Date: 20120509
  Receipt Date: 20120430
  Transmission Date: 20120825
  Serious: Yes (Other)
  Sender: FDA-Public Use
  Company Number: AUR-APL-2012-02030

PATIENT
  Age: 81 Year
  Sex: Female
  Weight: 68.0396 kg

DRUGS (6)
  1. OMEGA 3 (LIPITAC) [Concomitant]
  2. CALCIUM CARBONATE [Concomitant]
  3. HYDROCHLOROTHIAZIDE [Concomitant]
  4. ALENDRONIC ACID (ALENDRONIC ACID) [Suspect]
     Indication: OSTEOPOROSIS
     Dosage: 1 DOSAGE FORMS, 1 IN 1 WK, ORAL
     Route: 048
     Dates: start: 20120330, end: 20120422
  5. PLAVIX [Concomitant]
  6. ACETAMINOPHEN [Concomitant]

REACTIONS (6)
  - CHOKING [None]
  - FEELING ABNORMAL [None]
  - APHAGIA [None]
  - PAIN IN EXTREMITY [None]
  - MOVEMENT DISORDER [None]
  - GAIT DISTURBANCE [None]
